FAERS Safety Report 8761537 (Version 1)
Quarter: 2012Q4

REPORT INFORMATION
  Report Type: 
  Country: DE (occurrence: DE)
  Receive Date: 20120828
  Receipt Date: 20120828
  Transmission Date: 20130627
  Serious: Yes (Other)
  Sender: FDA-Public Use
  Company Number: DE-BAXTER-2012BAX015468

PATIENT

DRUGS (1)
  1. ENDOXAN [Suspect]
     Indication: GIANT CELL ARTERITIS
     Route: 048

REACTIONS (2)
  - Leukopenia [Recovered/Resolved]
  - Pneumonia [Recovered/Resolved]
